FAERS Safety Report 17855038 (Version 4)
Quarter: 2025Q4

REPORT INFORMATION
  Report Type: Spontaneous
  Country: EU (occurrence: EU)
  Receive Date: 20200603
  Receipt Date: 20251107
  Transmission Date: 20260118
  Serious: Yes (Disabling)
  Sender: ACCORD
  Company Number: None

PATIENT
  Age: 78 Year
  Sex: Female
  Weight: 56 kg

DRUGS (4)
  1. FLUOROURACIL [Suspect]
     Active Substance: FLUOROURACIL
     Indication: Colon cancer
     Dosage: 600 MG FOR 5 MINUTES FOLLOWED BY 3750 MG FOR 44 HOURS
     Dates: start: 20190122, end: 20190319
  2. LEUCOVORIN CALCIUM [Concomitant]
     Active Substance: LEUCOVORIN CALCIUM
     Dosage: 625 MG FOR 60 MINUTES ON THE SAME DAY AS FLUOROURACIL ADM
     Dates: start: 20190122, end: 20190529
  3. FLUOROURACIL [Suspect]
     Active Substance: FLUOROURACIL
     Indication: Adjuvant therapy
     Dosage: 3750 MG PER 14 DAYS, 5-FLUOROURACIL
     Dates: start: 20190402, end: 20190430
  4. FLUOROURACIL [Suspect]
     Active Substance: FLUOROURACIL
     Indication: Product used for unknown indication
     Dosage: 350 MG FOR 5 MINUTES FOLLOWED BY 2250 MG FOR 44 HOURS
     Dates: start: 20190515, end: 20190529

REACTIONS (16)
  - Hyposmia [Not Recovered/Not Resolved]
  - Balance disorder [Not Recovered/Not Resolved]
  - Vision blurred [Not Recovered/Not Resolved]
  - Pain [Not Recovered/Not Resolved]
  - Myelosuppression [Unknown]
  - Bone disorder [Not Recovered/Not Resolved]
  - Ageusia [Not Recovered/Not Resolved]
  - Palmar-plantar erythrodysaesthesia syndrome [Not Recovered/Not Resolved]
  - Lacrimation increased [Not Recovered/Not Resolved]
  - Memory impairment [Not Recovered/Not Resolved]
  - Tinnitus [Not Recovered/Not Resolved]
  - Nail disorder [Not Recovered/Not Resolved]
  - Glossodynia [Not Recovered/Not Resolved]
  - Hypohidrosis [Not Recovered/Not Resolved]
  - Dry mouth [Not Recovered/Not Resolved]
  - Dermatoglyphic anomaly [Not Recovered/Not Resolved]

NARRATIVE: CASE EVENT DATE: 20190101
